FAERS Safety Report 22230132 (Version 1)
Quarter: 2023Q2

REPORT INFORMATION
  Report Type: Spontaneous
  Country: US (occurrence: US)
  Receive Date: 20230419
  Receipt Date: 20230419
  Transmission Date: 20230722
  Serious: No
  Sender: FDA-Public Use
  Company Number: US-EVOKE PHARMA, INC.-2023EVO000008

PATIENT

DRUGS (1)
  1. GIMOTI [Suspect]
     Active Substance: METOCLOPRAMIDE HYDROCHLORIDE
     Indication: Nausea
     Dosage: 15 MILLIGRAM, QID, 1 SPRAY IN ONE NOSTRIL 30 MINUTES BEFORE EACH MEAL AND AT BEDTIME
     Route: 045
     Dates: start: 20230117, end: 20230118

REACTIONS (3)
  - Psychomotor hyperactivity [Recovering/Resolving]
  - Decreased appetite [Recovering/Resolving]
  - Insomnia [Recovering/Resolving]

NARRATIVE: CASE EVENT DATE: 20230117
